FAERS Safety Report 8260403-4 (Version None)
Quarter: 2012Q2

REPORT INFORMATION
  Report Type: 
  Country: None (occurrence: None)
  Receive Date: 20120404
  Receipt Date: 20120326
  Transmission Date: 20120825
  Serious: Yes (Hospitalization, Other)
  Sender: FDA-Public Use
  Company Number: PHHY2012US026698

PATIENT
  Age: 30 Year
  Sex: Male

DRUGS (4)
  1. METRONIDAZOLE [Concomitant]
     Indication: CLOSTRIDIAL INFECTION
  2. METOCLOPRAMIDE [Suspect]
     Indication: VOMITING
  3. VANCOMYCIN [Concomitant]
     Indication: CLOSTRIDIAL INFECTION
     Route: 048
  4. METOCLOPRAMIDE [Suspect]
     Indication: NAUSEA
     Dosage: 10 MG, BID

REACTIONS (11)
  - SUICIDAL BEHAVIOUR [None]
  - HOMICIDAL IDEATION [None]
  - NAUSEA [None]
  - DIARRHOEA [None]
  - TACHYPHRENIA [None]
  - FEELING ABNORMAL [None]
  - ALANINE AMINOTRANSFERASE INCREASED [None]
  - INSOMNIA [None]
  - RESTLESSNESS [None]
  - ANXIETY [None]
  - BLOOD GLUCOSE INCREASED [None]
